FAERS Safety Report 5403783-7 (Version None)
Quarter: 2007Q3

REPORT INFORMATION
  Report Type: 
  Country: None (occurrence: None)
  Receive Date: 20070802
  Receipt Date: 20070725
  Transmission Date: 20080115
  Serious: No
  Sender: FDA-Public Use
  Company Number: FR-BAXTER-2007BH006635

PATIENT
  Age: 83 Year
  Sex: Male

DRUGS (6)
  1. IMMUNE GLOBULIN INTRAVENOUS (HUMAN) [Suspect]
     Indication: IDIOPATHIC THROMBOCYTOPENIC PURPURA
     Route: 042
     Dates: start: 20070708, end: 20070709
  2. BACTRIM [Concomitant]
     Dosage: DOSE UNIT:UNKNOWN
     Route: 065
  3. SPECIAFOLDINE [Concomitant]
     Dosage: DOSE UNIT:UNKNOWN
     Route: 065
  4. NAFTILUX [Concomitant]
     Dosage: DOSE UNIT:UNKNOWN
     Route: 065
  5. ROCEPHIN [Concomitant]
     Indication: PNEUMOCYSTIS JIROVECI PNEUMONIA
     Route: 065
     Dates: start: 20070708, end: 20070709
  6. CIPROFLOXACIN HCL [Concomitant]
     Indication: PNEUMOCYSTIS JIROVECI PNEUMONIA
     Route: 065
     Dates: start: 20070708, end: 20070708

REACTIONS (1)
  - RENAL FAILURE [None]
